FAERS Safety Report 6910406-4 (Version None)
Quarter: 2010Q3

REPORT INFORMATION
  Report Type: 
  Country: None (occurrence: None)
  Receive Date: 20100806
  Receipt Date: 20100726
  Transmission Date: 20110219
  Serious: Yes (Other)
  Sender: FDA-Public Use
  Company Number: NO-PFIZER INC-2010093001

PATIENT
  Age: 67 Year
  Sex: Female

DRUGS (13)
  1. NEURONTIN [Suspect]
     Indication: NEURALGIA
     Dosage: 300 MG, DAILY
     Route: 048
     Dates: start: 20100601, end: 20100602
  2. NEURONTIN [Suspect]
     Dosage: 600 MG, DAILY
     Route: 048
     Dates: start: 20100603, end: 20100608
  3. NEURONTIN [Suspect]
     Dosage: 900 MG, DAILY
     Route: 048
     Dates: start: 20100608, end: 20100614
  4. NEURONTIN [Suspect]
     Dosage: 1200 MG, DAILY
     Dates: start: 20100615, end: 20100616
  5. SIMVASTATIN [Concomitant]
     Dosage: 40 MG, 1X/DAY
  6. ALENDRONIC ACID [Concomitant]
     Dosage: 70 MG, WEEKLY
  7. LANSOPRAZOLE [Concomitant]
     Dosage: 30 MG, 1X/DAY
  8. KLEXANE [Concomitant]
     Dosage: 40 MG, 1X/DAY
  9. ADALAT [Concomitant]
     Dosage: 30 MG, 1X/DAY
  10. CALCIGRAN FORTE [Concomitant]
     Dosage: 1 DF, 2X/DAY
     Route: 048
  11. PARACET [Concomitant]
     Dosage: 1 G, 4X/DAY
  12. PREDNISOLONE [Concomitant]
     Dosage: 5 MG, 1X/DAY
  13. OXYCONTIN [Concomitant]
     Dosage: 10 MG, 2X/DAY

REACTIONS (1)
  - LIVER DISORDER [None]
